FAERS Safety Report 17773306 (Version 1)
Quarter: 2020Q2

REPORT INFORMATION
  Report Type: Report from Study
  Country: None (occurrence: BR)
  Receive Date: 20200513
  Receipt Date: 20200513
  Transmission Date: 20200714
  Serious: Yes (Other)
  Sender: FDA-Public Use
  Company Number: BR-ABBVIE-20K-020-3393398-00

PATIENT
  Age: 67 Year
  Sex: Female
  Weight: 60 kg

DRUGS (9)
  1. HUMIRA [Suspect]
     Active Substance: ADALIMUMAB
     Indication: ANKYLOSING SPONDYLITIS
     Dosage: 1 UNSPECIFIC DOSE
     Route: 058
     Dates: start: 20190808, end: 2020
  2. PROBIOTIC MOOB [Concomitant]
     Indication: GASTROINTESTINAL DISORDER
  3. VITAMINE K2MK7 [Concomitant]
     Indication: CALCIFIC DEPOSITS REMOVAL
  4. COENZYME Q10 [Concomitant]
     Active Substance: UBIDECARENONE
     Indication: OXIDATIVE STRESS
  5. GLUCOSAMINE [Concomitant]
     Active Substance: GLUCOSAMINE
     Indication: ANKYLOSING SPONDYLITIS
  6. HYALURONIC ACID [Concomitant]
     Active Substance: HYALURONIC ACID
     Indication: ANKYLOSING SPONDYLITIS
  7. VITAMIN B3 [Concomitant]
     Active Substance: NIACIN
     Indication: IMMUNE SYSTEM DISORDER
  8. GLUTAMINE [Concomitant]
     Active Substance: GLUTAMINE
     Indication: GASTROINTESTINAL DISORDER
     Dosage: FREQUENCY TEXT- IN THE MORNING, FASTING
  9. CHONDROITIN [Concomitant]
     Active Substance: CHONDROITIN
     Indication: ANKYLOSING SPONDYLITIS

REACTIONS (9)
  - Cervical spinal cord paralysis [Not Recovered/Not Resolved]
  - Gait disturbance [Not Recovered/Not Resolved]
  - Insomnia [Not Recovered/Not Resolved]
  - Back pain [Not Recovered/Not Resolved]
  - Memory impairment [Not Recovered/Not Resolved]
  - Arthralgia [Not Recovered/Not Resolved]
  - Hypoaesthesia [Not Recovered/Not Resolved]
  - Pain in extremity [Not Recovered/Not Resolved]
  - Pain [Not Recovered/Not Resolved]

NARRATIVE: CASE EVENT DATE: 20200503
